FAERS Safety Report 6538344-X (Version None)
Quarter: 2010Q1

REPORT INFORMATION
  Report Type: 
  Country: None (occurrence: None)
  Receive Date: 20100111
  Receipt Date: 20100107
  Transmission Date: 20100710
  Serious: Yes (Other)
  Sender: FDA-Public Use
  Company Number: DE-1170740

PATIENT
  Age: 73 Year
  Sex: Female

DRUGS (8)
  1. FLUORESCEIN SODIUM [Suspect]
     Dosage: 2.5 ML INTRAVENOUS BOLUS
     Route: 040
     Dates: start: 20090813, end: 20090813
  2. RASILEZ (ALISKIREN) [Concomitant]
  3. LEVOTHYROXINE SODIUM [Concomitant]
  4. TOGAL (ACETYLSALICYLIC ACID) [Concomitant]
  5. RAMIPRIL [Concomitant]
  6. AMITRIPTYLINE HCL [Concomitant]
  7. PATOPRAZOL (PANTOPRAZOLE SODIUM) [Concomitant]
  8. ALPRENOLOL (ALPRENOLOL) [Concomitant]

REACTIONS (4)
  - BLOOD PRESSURE DECREASED [None]
  - COLD SWEAT [None]
  - SYNCOPE [None]
  - UNRESPONSIVE TO STIMULI [None]
